FAERS Safety Report 25523053 (Version 1)
Quarter: 2025Q3

REPORT INFORMATION
  Report Type: Spontaneous
  Country: EU (occurrence: EU)
  Receive Date: 20250707
  Receipt Date: 20250707
  Transmission Date: 20251020
  Serious: Yes (Other)
  Sender: SUNOVION
  Company Number: None

PATIENT

DRUGS (3)
  1. ESLICARBAZEPINE ACETATE [Interacting]
     Active Substance: ESLICARBAZEPINE ACETATE
     Indication: Epilepsy
     Dosage: 1600 MILLIGRAM, QD
     Route: 048
     Dates: start: 20250301, end: 20250301
  2. CENOBAMATE [Interacting]
     Active Substance: CENOBAMATE
     Indication: Epilepsy
     Dosage: 300 MILLIGRAM, QD
     Route: 048
     Dates: start: 20250301, end: 20250301
  3. BRIVIACT [Concomitant]
     Active Substance: BRIVARACETAM
     Indication: Epilepsy
     Dosage: 250 MILLIGRAM, QD
     Route: 048
     Dates: start: 202012

REACTIONS (5)
  - Diplopia [Recovered/Resolved]
  - Dizziness [Recovered/Resolved]
  - Somnolence [Recovered/Resolved]
  - Product administration error [Recovered/Resolved]
  - Overdose [Recovered/Resolved]

NARRATIVE: CASE EVENT DATE: 20250301
